FAERS Safety Report 15496754 (Version 3)
Quarter: 2019Q1

REPORT INFORMATION
  Report Type: Report from Study
  Country: AR (occurrence: AR)
  Receive Date: 20181014
  Receipt Date: 20190316
  Transmission Date: 20190417
  Serious: Yes (Death, Hospitalization, Other)
  Sender: FDA-Public Use
  Company Number: PHHY2018AR124243

PATIENT
  Sex: Female

DRUGS (4)
  1. AFINITOR [Suspect]
     Active Substance: EVEROLIMUS
     Indication: METASTASES TO LIVER
  2. OMEPRAZOLE. [Concomitant]
     Active Substance: OMEPRAZOLE
     Indication: PRODUCT USED FOR UNKNOWN INDICATION
     Dosage: UNK
     Route: 065
  3. DICLOFENAC [Concomitant]
     Active Substance: DICLOFENAC
     Indication: PRODUCT USED FOR UNKNOWN INDICATION
     Dosage: UNK
     Route: 065
  4. AFINITOR [Suspect]
     Active Substance: EVEROLIMUS
     Indication: BREAST CANCER
     Dosage: 10 MG, QD
     Route: 065
     Dates: start: 20180504

REACTIONS (12)
  - Dyspnoea [Fatal]
  - Palpitations [Fatal]
  - Sepsis [Unknown]
  - Cardio-respiratory arrest [Fatal]
  - Wheezing [Fatal]
  - Crepitations [Fatal]
  - Pulmonary sepsis [Fatal]
  - Malaise [Fatal]
  - Cough [Fatal]
  - Pulmonary toxicity [Unknown]
  - Respiratory tract infection [Unknown]
  - Fatigue [Fatal]
